FAERS Safety Report 4861047-4 (Version None)
Quarter: 2005Q4

REPORT INFORMATION
  Report Type: 
  Country: None (occurrence: None)
  Receive Date: 20051216
  Receipt Date: 20050930
  Transmission Date: 20060501
  Serious: Yes (Other)
  Sender: FDA-Public Use
  Company Number: NL200511003275

PATIENT
  Age: 81 Year
  Sex: Female
  Weight: 83 kg

DRUGS (6)
  1. FORTEO [Suspect]
     Indication: OSTEOPOROSIS
     Dosage: SUBCUTANEOUS
     Route: 058
     Dates: start: 20050919, end: 20051012
  2. FORTEO PEN (FORTEO PEN) [Concomitant]
  3. OMEPRAZOLE [Concomitant]
  4. FUROSEMIDE [Concomitant]
  5. ATENOLOL [Concomitant]
  6. PARACETAMOL (PARACETAMOL) [Concomitant]

REACTIONS (6)
  - ARTHRALGIA [None]
  - DIZZINESS [None]
  - HEADACHE [None]
  - INITIAL INSOMNIA [None]
  - MENTAL DISORDER [None]
  - URINARY INCONTINENCE [None]
